FAERS Safety Report 6059777-4 (Version None)
Quarter: 2009Q1

REPORT INFORMATION
  Report Type: 
  Country: None (occurrence: None)
  Receive Date: 20090130
  Receipt Date: 20090106
  Transmission Date: 20090719
  Serious: Yes (Hospitalization)
  Sender: FDA-Public Use
  Company Number: US-ROCHE-610510

PATIENT
  Sex: Male

DRUGS (5)
  1. PEG-INTERFERON ALFA 2A (RO 25-8310) [Suspect]
     Indication: HEPATITIS C
     Route: 058
     Dates: start: 20081202, end: 20090104
  2. RIBAVIRIN [Suspect]
     Indication: HEPATITIS C
     Route: 048
     Dates: start: 20081202, end: 20090104
  3. VX-950 [Suspect]
     Indication: HEPATITIS C
     Route: 048
     Dates: start: 20081202, end: 20090104
  4. BENADRYL GEL [Concomitant]
     Indication: RASH
     Route: 061
     Dates: start: 20081009
  5. BENADRYL [Concomitant]
     Indication: RASH
     Route: 048
     Dates: start: 20081209, end: 20081211

REACTIONS (17)
  - CHILLS [None]
  - DECREASED APPETITE [None]
  - DIPLOPIA [None]
  - DIZZINESS [None]
  - DYSPNOEA [None]
  - EYELID FUNCTION DISORDER [None]
  - HAEMATEMESIS [None]
  - HEADACHE [None]
  - MUSCULOSKELETAL STIFFNESS [None]
  - NAUSEA [None]
  - PAIN IN JAW [None]
  - PHOTOPHOBIA [None]
  - PYREXIA [None]
  - TREMOR [None]
  - VERTIGO [None]
  - VISION BLURRED [None]
  - VOMITING [None]
